FAERS Safety Report 18103357 (Version 3)
Quarter: 2021Q1

REPORT INFORMATION
  Report Type: Spontaneous
  Country: US (occurrence: US)
  Receive Date: 20200803
  Receipt Date: 20210308
  Transmission Date: 20210419
  Serious: Yes (Hospitalization)
  Sender: FDA-Public Use
  Company Number: US-PFIZER INC-2020292638

PATIENT
  Age: 65 Year
  Sex: Female

DRUGS (28)
  1. MUPIROCIN. [Concomitant]
     Active Substance: MUPIROCIN
     Dosage: UNK
  2. CALCIUM [Concomitant]
     Active Substance: CALCIUM
     Dosage: UNK
  3. MIRAPEX [Concomitant]
     Active Substance: PRAMIPEXOLE DIHYDROCHLORIDE
     Dosage: UNK
  4. AZELASTINE. [Concomitant]
     Active Substance: AZELASTINE HYDROCHLORIDE
     Dosage: UNK
  5. DEPAKOTE ER [Concomitant]
     Active Substance: DIVALPROEX SODIUM
     Dosage: UNK
  6. GABAPENTIN. [Concomitant]
     Active Substance: GABAPENTIN
     Dosage: UNK
  7. QUININE SULFATE. [Concomitant]
     Active Substance: QUININE SULFATE
     Dosage: UNK
  8. TYLENOL ARTHRITIS PAIN [Concomitant]
     Active Substance: ACETAMINOPHEN
     Dosage: UNK
  9. VITAMIN K2 [MENAQUINONE] [Concomitant]
     Active Substance: MENAQUINONE 6
     Dosage: UNK
  10. XELJANZ XR [Suspect]
     Active Substance: TOFACITINIB CITRATE
     Dosage: 11 MG, ALTERNATE DAY
     Dates: start: 202012
  11. VITAMIN B COMPLEX [Concomitant]
     Active Substance: CYANOCOBALAMIN\DEXPANTHENOL\NIACINAMIDE\PYRIDOXINE HYDROCHLORIDE\RIBOFLAVIN 5^-PHOSPHATE SODIUM\THIAMINE HYDROCHLORIDE\VITAMIN B COMPLEX
     Dosage: UNK
  12. ZYRTEC?D [Concomitant]
     Active Substance: CETIRIZINE HYDROCHLORIDE\PSEUDOEPHEDRINE HYDROCHLORIDE
     Dosage: UNK
  13. TRIAMTERENE. [Concomitant]
     Active Substance: TRIAMTERENE
     Dosage: UNK
  14. MONTELUKAST [Concomitant]
     Active Substance: MONTELUKAST SODIUM
     Dosage: UNK
  15. FLUCONAZOLE. [Concomitant]
     Active Substance: FLUCONAZOLE
     Dosage: UNK
  16. FISH OIL [Concomitant]
     Active Substance: FISH OIL
     Dosage: UNK
  17. LEFLUNOMIDE. [Concomitant]
     Active Substance: LEFLUNOMIDE
     Dosage: UNK
  18. DOCUSATE SOD [Concomitant]
     Dosage: UNK
  19. KLONOPIN [Concomitant]
     Active Substance: CLONAZEPAM
     Dosage: UNK
  20. VITAMIN C [Concomitant]
     Active Substance: ASCORBIC ACID
     Dosage: UNK
  21. ZOMIG [Concomitant]
     Active Substance: ZOLMITRIPTAN
     Dosage: UNK
  22. POT CHLOR ER [Concomitant]
     Dosage: UNK
  23. KRILL OIL [Concomitant]
     Active Substance: DIETARY SUPPLEMENT\KRILL OIL
     Dosage: UNK
  24. LORATADINE. [Concomitant]
     Active Substance: LORATADINE
     Dosage: UNK
  25. MELATONIN [Concomitant]
     Active Substance: MELATONIN
     Dosage: UNK
  26. XELJANZ XR [Suspect]
     Active Substance: TOFACITINIB CITRATE
     Dosage: 11 MG, DAILY
     Route: 048
     Dates: start: 20200630
  27. XELJANZ XR [Suspect]
     Active Substance: TOFACITINIB CITRATE
     Indication: RHEUMATOID ARTHRITIS
     Dosage: 11 MG, DAILY
     Route: 048
     Dates: start: 20200630
  28. PREDNISONE. [Concomitant]
     Active Substance: PREDNISONE
     Dosage: UNK

REACTIONS (6)
  - Diarrhoea [Unknown]
  - Heart rate increased [Not Recovered/Not Resolved]
  - COVID-19 [Recovered/Resolved]
  - Fatigue [Unknown]
  - Off label use [Unknown]
  - Palpitations [Unknown]

NARRATIVE: CASE EVENT DATE: 202007
